FAERS Safety Report 8041368-7 (Version None)
Quarter: 2012Q1

REPORT INFORMATION
  Report Type: 
  Country: None (occurrence: None)
  Receive Date: 20120112
  Receipt Date: 20111229
  Transmission Date: 20120608
  Serious: Yes (Other)
  Sender: FDA-Public Use
  Company Number: NZ-MYLANLABS-2012S1000064

PATIENT
  Age: 80 Year
  Sex: Male

DRUGS (4)
  1. ASPIRIN [Concomitant]
     Indication: CARDIAC DISORDER
     Route: 048
  2. ACCUPRIL [Concomitant]
     Indication: BLOOD PRESSURE INCREASED
     Route: 048
  3. MULTI-VITAMIN [Concomitant]
     Route: 048
  4. OMEPRAZOLE [Suspect]
     Indication: GASTROOESOPHAGEAL REFLUX DISEASE
     Route: 048
     Dates: start: 20111120

REACTIONS (2)
  - PHOTOPSIA [None]
  - VISION BLURRED [None]
